FAERS Safety Report 15268200 (Version 1)
Quarter: 2018Q3

REPORT INFORMATION
  Report Type: Spontaneous
  Country: US (occurrence: US)
  Receive Date: 20180724
  Receipt Date: 20180724
  Transmission Date: 20181010
  Serious: Yes (Hospitalization)
  Sender: FDA-Public Use
  Company Number: None

PATIENT
  Age: 10 Year
  Sex: Male
  Weight: 44.3 kg

DRUGS (16)
  1. VITAMIN D [Concomitant]
     Active Substance: CHOLECALCIFEROL
  2. ONDANSETRON [Concomitant]
     Active Substance: ONDANSETRON
  3. SUCRALAFATE [Concomitant]
  4. VALTREX [Concomitant]
     Active Substance: VALACYCLOVIR HYDROCHLORIDE
  5. BLINATUMOMAB 35MCG VIAL AMGEN [Suspect]
     Active Substance: BLINATUMOMAB
     Indication: ACUTE LEUKAEMIA
     Dosage: ?          OTHER FREQUENCY:CONTINUOUS INFUSIO;?
     Route: 042
     Dates: start: 20180622, end: 20180713
  6. DIPHENHYDRAMINE. [Concomitant]
     Active Substance: DIPHENHYDRAMINE
  7. LEVOFLOXACIN. [Concomitant]
     Active Substance: LEVOFLOXACIN
  8. BACTRIM [Concomitant]
     Active Substance: SULFAMETHOXAZOLE\TRIMETHOPRIM
  9. GABAPENTIN. [Concomitant]
     Active Substance: GABAPENTIN
  10. OLANZAPINE. [Concomitant]
     Active Substance: OLANZAPINE
  11. DASATINIB 20 AND 70MG [Suspect]
     Active Substance: DASATINIB
     Indication: B-CELL TYPE ACUTE LEUKAEMIA
     Route: 048
     Dates: start: 20180427
  12. CLONAZEPAM. [Concomitant]
     Active Substance: CLONAZEPAM
  13. POTASSIUM CHLORIDE. [Concomitant]
     Active Substance: POTASSIUM CHLORIDE
  14. METOCLOPRAMIDE. [Concomitant]
     Active Substance: METOCLOPRAMIDE
  15. MICAFUNGIN [Concomitant]
     Active Substance: MICAFUNGIN
  16. URSODIOL. [Concomitant]
     Active Substance: URSODIOL

REACTIONS (6)
  - Tachypnoea [None]
  - Febrile neutropenia [None]
  - Disease progression [None]
  - Pallor [None]
  - Hypotension [None]
  - Pyrexia [None]

NARRATIVE: CASE EVENT DATE: 20180713
